FAERS Safety Report 6805210-1 (Version None)
Quarter: 2010Q2

REPORT INFORMATION
  Report Type: 
  Country: None (occurrence: None)
  Receive Date: 20100628
  Receipt Date: 20071106
  Transmission Date: 20101027
  Serious: No
  Sender: FDA-Public Use
  Company Number: US-PFIZER INC-2007054892

PATIENT
  Sex: Male
  Weight: 65 kg

DRUGS (2)
  1. GENOTROPIN [Suspect]
     Indication: HYPOPITUITARISM
     Route: 058
     Dates: start: 19980101, end: 20070630
  2. CABERGOLINE [Concomitant]
     Dates: start: 19980101

REACTIONS (1)
  - HYPOTHYROIDISM [None]
